FAERS Safety Report 7973656-4 (Version None)
Quarter: 2011Q4

REPORT INFORMATION
  Report Type: 
  Country: None (occurrence: None)
  Receive Date: 20111201
  Receipt Date: 20111118
  Transmission Date: 20120403
  Serious: Yes (Other)
  Sender: FDA-Public Use
  Company Number: 2011SP054588

PATIENT

DRUGS (1)
  1. NOXAFIL [Suspect]
     Indication: FUNGAL INFECTION

REACTIONS (1)
  - CENTRAL NERVOUS SYSTEM INFECTION [None]
